FAERS Safety Report 17846277 (Version 1)
Quarter: 2020Q2

REPORT INFORMATION
  Report Type: Spontaneous
  Country: US (occurrence: US)
  Receive Date: 20200601
  Receipt Date: 20200601
  Transmission Date: 20200714
  Serious: No
  Sender: FDA-Public Use
  Company Number: None

PATIENT
  Age: 50 Year
  Sex: Female
  Weight: 53.1 kg

DRUGS (1)
  1. ESOMEPRAZOLE 20MG [Suspect]
     Active Substance: ESOMEPRAZOLE
     Indication: GASTROOESOPHAGEAL REFLUX DISEASE
     Route: 048
     Dates: start: 20200527, end: 20200601

REACTIONS (8)
  - Tachyphrenia [None]
  - Somnolence [None]
  - Palpitations [None]
  - Constipation [None]
  - Nervousness [None]
  - Diarrhoea [None]
  - Anxiety [None]
  - Insomnia [None]

NARRATIVE: CASE EVENT DATE: 20200601
